FAERS Safety Report 8184668-2 (Version None)
Quarter: 2012Q1

REPORT INFORMATION
  Report Type: 
  Country: None (occurrence: None)
  Receive Date: 20120305
  Receipt Date: 20120210
  Transmission Date: 20120608
  Serious: No
  Sender: FDA-Public Use
  Company Number: BR-ASTRAZENECA-2012SE09649

PATIENT
  Age: 62 Year
  Sex: Male
  Weight: 129.3 kg

DRUGS (5)
  1. CLONAZEPAM [Concomitant]
     Dosage: ONCE A DAY
     Route: 048
  2. CAPTOPRIL [Concomitant]
     Indication: HYPERTENSION
     Route: 048
     Dates: start: 20120101
  3. LOSARTAN POTASSIUM [Concomitant]
     Indication: HYPERTENSION
     Route: 048
  4. ASPIRIN [Concomitant]
     Route: 048
  5. BRILINTA [Suspect]
     Indication: ANGIOPLASTY
     Route: 048
     Dates: start: 20120120

REACTIONS (3)
  - FATIGUE [None]
  - URINARY RETENTION [None]
  - DYSPNOEA [None]
